FAERS Safety Report 7566919-8 (Version None)
Quarter: 2011Q2

REPORT INFORMATION
  Report Type: 
  Country: None (occurrence: None)
  Receive Date: 20110616
  Receipt Date: 20110602
  Transmission Date: 20111010
  Serious: Yes (Hospitalization)
  Sender: FDA-Public Use
  Company Number: DSJ-2011-11040

PATIENT
  Age: 71 Year
  Sex: Male

DRUGS (4)
  1. CLOPIDOGREL (CLOPIDOGREL) (CLOPIDOGREL) [Concomitant]
  2. BENICAR HCT [Suspect]
     Indication: HYPERTENSION
     Dosage: 40/12.5 MG (1 IN 1 D), PER ORAL
     Route: 048
     Dates: start: 20110101, end: 20110531
  3. ENALAPRIL MALEATE [Concomitant]
  4. AMIODARONE HCL [Concomitant]

REACTIONS (1)
  - DRUG INEFFECTIVE [None]
